APPROVED DRUG PRODUCT: ALBUTEROL SULFATE
Active Ingredient: ALBUTEROL SULFATE
Strength: EQ 0.083% BASE
Dosage Form/Route: SOLUTION;INHALATION
Application: A077569 | Product #001
Applicant: LANDELA PHARMACEUTICAL
Approved: Apr 4, 2006 | RLD: No | RS: No | Type: DISCN